FAERS Safety Report 6045543-2 (Version None)
Quarter: 2009Q1

REPORT INFORMATION
  Report Type: 
  Country: None (occurrence: None)
  Receive Date: 20090121
  Receipt Date: 20090115
  Transmission Date: 20090719
  Serious: Yes (Hospitalization)
  Sender: FDA-Public Use
  Company Number: B0554628A

PATIENT
  Age: 21 Year
  Sex: Female
  Weight: 44.1 kg

DRUGS (8)
  1. COMBIVIR [Suspect]
     Indication: ANTIVIRAL PROPHYLAXIS
     Route: 048
     Dates: start: 20081223
  2. LOPINAVIR AND RITONAVIR [Suspect]
     Indication: ANTIVIRAL PROPHYLAXIS
     Route: 048
     Dates: start: 20081223
  3. FOLIC ACID [Concomitant]
     Indication: PROPHYLAXIS
     Route: 048
  4. MULTI-VITAMIN [Concomitant]
     Route: 048
  5. CALCIUM PHOSPHATE [Concomitant]
     Indication: PREGNANCY
     Route: 048
  6. VITAMIN D3 [Concomitant]
     Indication: PREGNANCY
     Route: 048
  7. FERROUS FUMARATE [Concomitant]
     Route: 048
  8. VITAMIN B-12 [Concomitant]
     Route: 048

REACTIONS (11)
  - ABDOMINAL DISCOMFORT [None]
  - ABDOMINAL PAIN LOWER [None]
  - ABDOMINAL PAIN UPPER [None]
  - DIZZINESS [None]
  - DRUG EXPOSURE DURING PREGNANCY [None]
  - DYSPEPSIA [None]
  - DYSURIA [None]
  - FAECES HARD [None]
  - GASTRITIS [None]
  - NAUSEA [None]
  - POLLAKIURIA [None]
